FAERS Safety Report 17249760 (Version 2)
Quarter: 2020Q1

REPORT INFORMATION
  Report Type: Spontaneous
  Country: US (occurrence: US)
  Receive Date: 20200109
  Receipt Date: 20200130
  Transmission Date: 20200409
  Serious: No
  Sender: FDA-Public Use
  Company Number: US-AMGEN-USASP2020001921

PATIENT
  Age: 66 Year
  Sex: Female
  Weight: 84 kg

DRUGS (5)
  1. PROLIA [Suspect]
     Active Substance: DENOSUMAB
     Indication: OSTEOPOROSIS POSTMENOPAUSAL
     Dosage: UNK
     Route: 065
     Dates: start: 20190115
  2. HCTZ [Concomitant]
     Active Substance: HYDROCHLOROTHIAZIDE
     Indication: HYPERTENSION
     Dosage: 25 MILLIGRAM, QD
     Dates: start: 2013
  3. PRILOSEC [Concomitant]
     Active Substance: OMEPRAZOLE MAGNESIUM
     Indication: GASTROOESOPHAGEAL REFLUX DISEASE
     Dosage: 40 MILLIGRAM, QD
     Dates: start: 2014
  4. FLEXERIL [CEFIXIME] [Concomitant]
     Active Substance: CEFIXIME
     Dosage: UNK
  5. TOPROL XL [Concomitant]
     Active Substance: METOPROLOL SUCCINATE
     Indication: HYPERTENSION
     Dosage: 25 MILLIGRAM, QD
     Dates: start: 2013

REACTIONS (3)
  - Muscle spasms [Recovering/Resolving]
  - Pain [Unknown]
  - Insomnia [Unknown]

NARRATIVE: CASE EVENT DATE: 2019
